FAERS Safety Report 5897051-7 (Version None)
Quarter: 2008Q3

REPORT INFORMATION
  Report Type: 
  Country: None (occurrence: None)
  Receive Date: 20080924
  Receipt Date: 20080916
  Transmission Date: 20090109
  Serious: Yes (Life-Threatening, Hospitalization, Other)
  Sender: FDA-Public Use
  Company Number: CA-MERCK-0801CAN00155

PATIENT
  Age: 67 Year
  Sex: Female

DRUGS (15)
  1. ZETIA [Suspect]
     Indication: DYSLIPIDAEMIA
     Route: 048
     Dates: start: 20060901, end: 20070411
  2. CILAZAPRIL [Concomitant]
     Route: 048
  3. CILAZAPRIL [Concomitant]
     Route: 048
     Dates: end: 20070411
  4. RANITIDINE HYDROCHLORIDE [Concomitant]
     Route: 048
  5. RANITIDINE HYDROCHLORIDE [Concomitant]
     Route: 048
     Dates: start: 20070213
  6. RANITIDINE HYDROCHLORIDE [Concomitant]
     Route: 048
     Dates: start: 20070413
  7. FLUTICASONE PROPIONATE AND SALMETEROL XINAFOATE [Concomitant]
     Route: 065
  8. CALCIUM CARBONATE AND ETIDRONATE SODIUM [Concomitant]
     Route: 048
     Dates: end: 20070413
  9. FENOTEROL HYDROBROMIDE [Concomitant]
  10. ROSUVASTATIN CALCIUM [Suspect]
     Indication: DYSLIPIDAEMIA
     Route: 048
  11. ROSUVASTATIN CALCIUM [Suspect]
     Route: 048
     Dates: start: 20060901
  12. ROSUVASTATIN CALCIUM [Suspect]
     Route: 048
     Dates: start: 20061108, end: 20070411
  13. DILTIAZEM HYDROCHLORIDE [Suspect]
     Route: 048
  14. ASPIRIN [Concomitant]
     Route: 048
  15. GLUCOSAMINE [Concomitant]
     Route: 065

REACTIONS (12)
  - ABDOMINAL PAIN [None]
  - ALANINE AMINOTRANSFERASE INCREASED [None]
  - ASPARTATE AMINOTRANSFERASE INCREASED [None]
  - BLOOD CREATINE PHOSPHOKINASE INCREASED [None]
  - BLOOD CREATININE INCREASED [None]
  - BLOOD LACTATE DEHYDROGENASE INCREASED [None]
  - DEHYDRATION [None]
  - DRUG INTERACTION [None]
  - MUSCLE SPASMS [None]
  - NAUSEA [None]
  - RHABDOMYOLYSIS [None]
  - VOMITING [None]
